FAERS Safety Report 14891674 (Version 1)
Quarter: 2018Q2

REPORT INFORMATION
  Report Type: Spontaneous
  Country: NZ (occurrence: NZ)
  Receive Date: 20180514
  Receipt Date: 20180514
  Transmission Date: 20180711
  Serious: Yes (Hospitalization, Other)
  Sender: FDA-Public Use
  Company Number: NZ-MYLANLABS-2018M1030139

PATIENT
  Sex: Male

DRUGS (8)
  1. BACLOFEN. [Suspect]
     Active Substance: BACLOFEN
     Indication: DEPENDENCE
  2. ZOPICLONE [Suspect]
     Active Substance: ZOPICLONE
     Indication: DEPENDENCE
  3. NICOTINE. [Suspect]
     Active Substance: NICOTINE
     Indication: DEPENDENCE
  4. CAFFEINE. [Suspect]
     Active Substance: CAFFEINE
     Indication: DEPENDENCE
  5. BACLOFEN. [Suspect]
     Active Substance: BACLOFEN
     Indication: MENTAL DISORDER
     Dosage: UNK
  6. ZOPICLONE [Suspect]
     Active Substance: ZOPICLONE
     Indication: MENTAL DISORDER
     Dosage: UNK
  7. CAFFEINE. [Suspect]
     Active Substance: CAFFEINE
     Indication: MENTAL DISORDER
  8. NICOTINE. [Suspect]
     Active Substance: NICOTINE
     Indication: MENTAL DISORDER

REACTIONS (2)
  - Delirium [Unknown]
  - Off label use [Unknown]
